FAERS Safety Report 22240661 (Version 3)
Quarter: 2025Q2

REPORT INFORMATION
  Report Type: Report from Study
  Country: ES (occurrence: ES)
  Receive Date: 20230421
  Receipt Date: 20250528
  Transmission Date: 20250716
  Serious: Yes (Hospitalization, Other)
  Sender: MYLAN
  Company Number: ES-ROCHE-3277850

PATIENT
  Age: 70 Year
  Sex: Female
  Weight: 55.4 kg

DRUGS (216)
  1. LENALIDOMIDE [Suspect]
     Active Substance: LENALIDOMIDE
     Indication: Follicular lymphoma
     Dosage: 20 MILLIGRAM, QD (CAPSULE, HARD)
     Route: 048
     Dates: start: 20220805, end: 20220825
  2. LENALIDOMIDE [Suspect]
     Active Substance: LENALIDOMIDE
     Indication: Follicular lymphoma stage I
     Dosage: 20 MILLIGRAM, QD (CAPSULE, HARD)
     Route: 048
     Dates: start: 20220805, end: 20220825
  3. LENALIDOMIDE [Suspect]
     Active Substance: LENALIDOMIDE
     Dosage: 20 MILLIGRAM, QD (CAPSULE, HARD)
     Dates: start: 20220805, end: 20220825
  4. LENALIDOMIDE [Suspect]
     Active Substance: LENALIDOMIDE
     Dosage: 20 MILLIGRAM, QD (CAPSULE, HARD)
     Dates: start: 20220805, end: 20220825
  5. LENALIDOMIDE [Suspect]
     Active Substance: LENALIDOMIDE
     Dosage: 15 MILLIGRAM, QD (CAPSULE, HARD)
     Dates: start: 20220905, end: 20220913
  6. LENALIDOMIDE [Suspect]
     Active Substance: LENALIDOMIDE
     Dosage: 15 MILLIGRAM, QD (CAPSULE, HARD)
     Dates: start: 20220905, end: 20220913
  7. LENALIDOMIDE [Suspect]
     Active Substance: LENALIDOMIDE
     Dosage: 15 MILLIGRAM, QD (CAPSULE, HARD)
     Route: 048
     Dates: start: 20220905, end: 20220913
  8. LENALIDOMIDE [Suspect]
     Active Substance: LENALIDOMIDE
     Dosage: 15 MILLIGRAM, QD (CAPSULE, HARD)
     Route: 048
     Dates: start: 20220905, end: 20220913
  9. LENALIDOMIDE [Suspect]
     Active Substance: LENALIDOMIDE
     Dosage: 15 MILLIGRAM, QD (CAPSULE, HARD)
     Dates: start: 20221004, end: 20221024
  10. LENALIDOMIDE [Suspect]
     Active Substance: LENALIDOMIDE
     Dosage: 15 MILLIGRAM, QD (CAPSULE, HARD)
     Dates: start: 20221004, end: 20221024
  11. LENALIDOMIDE [Suspect]
     Active Substance: LENALIDOMIDE
     Dosage: 15 MILLIGRAM, QD (CAPSULE, HARD)
     Route: 048
     Dates: start: 20221004, end: 20221024
  12. LENALIDOMIDE [Suspect]
     Active Substance: LENALIDOMIDE
     Dosage: 15 MILLIGRAM, QD (CAPSULE, HARD)
     Route: 048
     Dates: start: 20221004, end: 20221024
  13. LENALIDOMIDE [Suspect]
     Active Substance: LENALIDOMIDE
     Dosage: 15 MILLIGRAM, QD (CAPSULE, HARD)
     Route: 048
     Dates: start: 20221102, end: 20221122
  14. LENALIDOMIDE [Suspect]
     Active Substance: LENALIDOMIDE
     Dosage: 15 MILLIGRAM, QD (CAPSULE, HARD)
     Route: 048
     Dates: start: 20221102, end: 20221122
  15. LENALIDOMIDE [Suspect]
     Active Substance: LENALIDOMIDE
     Dosage: 15 MILLIGRAM, QD (CAPSULE, HARD)
     Dates: start: 20221102, end: 20221122
  16. LENALIDOMIDE [Suspect]
     Active Substance: LENALIDOMIDE
     Dosage: 15 MILLIGRAM, QD (CAPSULE, HARD)
     Dates: start: 20221102, end: 20221122
  17. LENALIDOMIDE [Suspect]
     Active Substance: LENALIDOMIDE
     Dosage: 10 MILLIGRAM, QD CAPSULE, HARD)
     Dates: start: 20230118, end: 20230123
  18. LENALIDOMIDE [Suspect]
     Active Substance: LENALIDOMIDE
     Dosage: 10 MILLIGRAM, QD CAPSULE, HARD)
     Route: 048
     Dates: start: 20230118, end: 20230123
  19. LENALIDOMIDE [Suspect]
     Active Substance: LENALIDOMIDE
     Dosage: 10 MILLIGRAM, QD CAPSULE, HARD)
     Dates: start: 20230118, end: 20230123
  20. LENALIDOMIDE [Suspect]
     Active Substance: LENALIDOMIDE
     Dosage: 10 MILLIGRAM, QD CAPSULE, HARD)
     Route: 048
     Dates: start: 20230118, end: 20230123
  21. EPCORITAMAB [Suspect]
     Active Substance: EPCORITAMAB
     Indication: Follicular lymphoma
     Route: 058
     Dates: start: 20220805, end: 20220805
  22. EPCORITAMAB [Suspect]
     Active Substance: EPCORITAMAB
     Indication: Follicular lymphoma stage IV
     Route: 058
     Dates: start: 20220805, end: 20220805
  23. EPCORITAMAB [Suspect]
     Active Substance: EPCORITAMAB
     Dates: start: 20220805, end: 20220805
  24. EPCORITAMAB [Suspect]
     Active Substance: EPCORITAMAB
     Dates: start: 20220805, end: 20220805
  25. EPCORITAMAB [Suspect]
     Active Substance: EPCORITAMAB
     Dates: start: 20220812, end: 20220812
  26. EPCORITAMAB [Suspect]
     Active Substance: EPCORITAMAB
     Dates: start: 20220812, end: 20220812
  27. EPCORITAMAB [Suspect]
     Active Substance: EPCORITAMAB
     Route: 058
     Dates: start: 20220812, end: 20220812
  28. EPCORITAMAB [Suspect]
     Active Substance: EPCORITAMAB
     Route: 058
     Dates: start: 20220812, end: 20220812
  29. EPCORITAMAB [Suspect]
     Active Substance: EPCORITAMAB
     Dosage: 48 MILLIGRAM, QW
     Dates: start: 20220819, end: 20220927
  30. EPCORITAMAB [Suspect]
     Active Substance: EPCORITAMAB
     Dosage: 48 MILLIGRAM, QW
     Dates: start: 20220819, end: 20220927
  31. EPCORITAMAB [Suspect]
     Active Substance: EPCORITAMAB
     Dosage: 48 MILLIGRAM, QW
     Route: 058
     Dates: start: 20220819, end: 20220927
  32. EPCORITAMAB [Suspect]
     Active Substance: EPCORITAMAB
     Dosage: 48 MILLIGRAM, QW
     Route: 058
     Dates: start: 20220819, end: 20220927
  33. EPCORITAMAB [Suspect]
     Active Substance: EPCORITAMAB
     Dosage: 48 MILLIGRAM, Q28D (4 WEEK)
     Route: 058
     Dates: start: 20221004, end: 20221102
  34. EPCORITAMAB [Suspect]
     Active Substance: EPCORITAMAB
     Dosage: 48 MILLIGRAM, Q28D (4 WEEK)
     Route: 058
     Dates: start: 20221004, end: 20221102
  35. EPCORITAMAB [Suspect]
     Active Substance: EPCORITAMAB
     Dosage: 48 MILLIGRAM, Q28D (4 WEEK)
     Dates: start: 20221004, end: 20221102
  36. EPCORITAMAB [Suspect]
     Active Substance: EPCORITAMAB
     Dosage: 48 MILLIGRAM, Q28D (4 WEEK)
     Dates: start: 20221004, end: 20221102
  37. EPCORITAMAB [Suspect]
     Active Substance: EPCORITAMAB
     Dates: start: 20230118, end: 20230118
  38. EPCORITAMAB [Suspect]
     Active Substance: EPCORITAMAB
     Route: 058
     Dates: start: 20230118, end: 20230118
  39. EPCORITAMAB [Suspect]
     Active Substance: EPCORITAMAB
     Dates: start: 20230118, end: 20230118
  40. EPCORITAMAB [Suspect]
     Active Substance: EPCORITAMAB
     Route: 058
     Dates: start: 20230118, end: 20230118
  41. RITUXIMAB [Suspect]
     Active Substance: RITUXIMAB
     Indication: Follicular lymphoma
     Dosage: 375 MILLIGRAM/SQ. METER, QW
     Route: 042
     Dates: start: 20220805, end: 20220829
  42. RITUXIMAB [Suspect]
     Active Substance: RITUXIMAB
     Indication: Follicular lymphoma stage IV
     Dosage: 375 MILLIGRAM/SQ. METER, QW
     Dates: start: 20220805, end: 20220829
  43. RITUXIMAB [Suspect]
     Active Substance: RITUXIMAB
     Dosage: 375 MILLIGRAM/SQ. METER, QW
     Dates: start: 20220805, end: 20220829
  44. RITUXIMAB [Suspect]
     Active Substance: RITUXIMAB
     Dosage: 375 MILLIGRAM/SQ. METER, QW
     Route: 042
     Dates: start: 20220805, end: 20220829
  45. RITUXIMAB [Suspect]
     Active Substance: RITUXIMAB
     Dosage: 375 MILLIGRAM/SQ. METER, Q28D (4 WEEK)
     Dates: start: 20220905, end: 20221102
  46. RITUXIMAB [Suspect]
     Active Substance: RITUXIMAB
     Dosage: 375 MILLIGRAM/SQ. METER, Q28D (4 WEEK)
     Dates: start: 20220905, end: 20221102
  47. RITUXIMAB [Suspect]
     Active Substance: RITUXIMAB
     Dosage: 375 MILLIGRAM/SQ. METER, Q28D (4 WEEK)
     Route: 042
     Dates: start: 20220905, end: 20221102
  48. RITUXIMAB [Suspect]
     Active Substance: RITUXIMAB
     Dosage: 375 MILLIGRAM/SQ. METER, Q28D (4 WEEK)
     Route: 042
     Dates: start: 20220905, end: 20221102
  49. RITUXIMAB [Suspect]
     Active Substance: RITUXIMAB
     Route: 042
     Dates: start: 20230118, end: 20230118
  50. RITUXIMAB [Suspect]
     Active Substance: RITUXIMAB
     Dates: start: 20230118, end: 20230118
  51. RITUXIMAB [Suspect]
     Active Substance: RITUXIMAB
     Dates: start: 20230118, end: 20230118
  52. RITUXIMAB [Suspect]
     Active Substance: RITUXIMAB
     Route: 042
     Dates: start: 20230118, end: 20230118
  53. DESVENLAFAXINE [Concomitant]
     Active Substance: DESVENLAFAXINE
  54. DESVENLAFAXINE [Concomitant]
     Active Substance: DESVENLAFAXINE
     Route: 065
  55. DESVENLAFAXINE [Concomitant]
     Active Substance: DESVENLAFAXINE
     Route: 065
  56. DESVENLAFAXINE [Concomitant]
     Active Substance: DESVENLAFAXINE
  57. LORAZEPAM [Concomitant]
     Active Substance: LORAZEPAM
  58. LORAZEPAM [Concomitant]
     Active Substance: LORAZEPAM
     Route: 065
  59. LORAZEPAM [Concomitant]
     Active Substance: LORAZEPAM
     Route: 065
  60. LORAZEPAM [Concomitant]
     Active Substance: LORAZEPAM
  61. PRIMPERAN [Concomitant]
     Active Substance: METOCLOPRAMIDE HYDROCHLORIDE
  62. PRIMPERAN [Concomitant]
     Active Substance: METOCLOPRAMIDE HYDROCHLORIDE
     Route: 065
  63. PRIMPERAN [Concomitant]
     Active Substance: METOCLOPRAMIDE HYDROCHLORIDE
     Route: 065
  64. PRIMPERAN [Concomitant]
     Active Substance: METOCLOPRAMIDE HYDROCHLORIDE
  65. POLARAMINE [Concomitant]
     Active Substance: DEXCHLORPHENIRAMINE MALEATE
     Indication: Premedication
     Route: 048
     Dates: start: 20221102, end: 20221102
  66. POLARAMINE [Concomitant]
     Active Substance: DEXCHLORPHENIRAMINE MALEATE
     Dates: start: 20221102, end: 20221102
  67. POLARAMINE [Concomitant]
     Active Substance: DEXCHLORPHENIRAMINE MALEATE
     Dates: start: 20221102, end: 20221102
  68. POLARAMINE [Concomitant]
     Active Substance: DEXCHLORPHENIRAMINE MALEATE
     Route: 048
     Dates: start: 20221102, end: 20221102
  69. POLARAMINE [Concomitant]
     Active Substance: DEXCHLORPHENIRAMINE MALEATE
     Dates: start: 20221102, end: 20221102
  70. POLARAMINE [Concomitant]
     Active Substance: DEXCHLORPHENIRAMINE MALEATE
     Route: 065
     Dates: start: 20221102, end: 20221102
  71. POLARAMINE [Concomitant]
     Active Substance: DEXCHLORPHENIRAMINE MALEATE
     Route: 065
     Dates: start: 20221102, end: 20221102
  72. POLARAMINE [Concomitant]
     Active Substance: DEXCHLORPHENIRAMINE MALEATE
     Dates: start: 20221102, end: 20221102
  73. POLARAMINE [Concomitant]
     Active Substance: DEXCHLORPHENIRAMINE MALEATE
     Dates: start: 20221102, end: 20230118
  74. POLARAMINE [Concomitant]
     Active Substance: DEXCHLORPHENIRAMINE MALEATE
     Route: 065
     Dates: start: 20221102, end: 20230118
  75. POLARAMINE [Concomitant]
     Active Substance: DEXCHLORPHENIRAMINE MALEATE
     Route: 065
     Dates: start: 20221102, end: 20230118
  76. POLARAMINE [Concomitant]
     Active Substance: DEXCHLORPHENIRAMINE MALEATE
     Dates: start: 20221102, end: 20230118
  77. POLARAMINE [Concomitant]
     Active Substance: DEXCHLORPHENIRAMINE MALEATE
     Dates: start: 20230118, end: 20230118
  78. POLARAMINE [Concomitant]
     Active Substance: DEXCHLORPHENIRAMINE MALEATE
     Dates: start: 20230118, end: 20230118
  79. POLARAMINE [Concomitant]
     Active Substance: DEXCHLORPHENIRAMINE MALEATE
     Route: 048
     Dates: start: 20230118, end: 20230118
  80. POLARAMINE [Concomitant]
     Active Substance: DEXCHLORPHENIRAMINE MALEATE
     Route: 048
     Dates: start: 20230118, end: 20230118
  81. POLARAMINE [Concomitant]
     Active Substance: DEXCHLORPHENIRAMINE MALEATE
     Route: 048
     Dates: start: 20230118, end: 20230118
  82. POLARAMINE [Concomitant]
     Active Substance: DEXCHLORPHENIRAMINE MALEATE
     Dates: start: 20230118, end: 20230118
  83. POLARAMINE [Concomitant]
     Active Substance: DEXCHLORPHENIRAMINE MALEATE
     Route: 048
     Dates: start: 20230118, end: 20230118
  84. POLARAMINE [Concomitant]
     Active Substance: DEXCHLORPHENIRAMINE MALEATE
     Dates: start: 20230118, end: 20230118
  85. SULFAMETHOXAZOLE\TRIMETHOPRIM [Concomitant]
     Active Substance: SULFAMETHOXAZOLE\TRIMETHOPRIM
  86. SULFAMETHOXAZOLE\TRIMETHOPRIM [Concomitant]
     Active Substance: SULFAMETHOXAZOLE\TRIMETHOPRIM
     Route: 065
  87. SULFAMETHOXAZOLE\TRIMETHOPRIM [Concomitant]
     Active Substance: SULFAMETHOXAZOLE\TRIMETHOPRIM
     Route: 065
  88. SULFAMETHOXAZOLE\TRIMETHOPRIM [Concomitant]
     Active Substance: SULFAMETHOXAZOLE\TRIMETHOPRIM
  89. DEXAMETHASONE [Concomitant]
     Active Substance: DEXAMETHASONE
     Indication: Prophylaxis
     Route: 065
     Dates: start: 20221102, end: 20221102
  90. DEXAMETHASONE [Concomitant]
     Active Substance: DEXAMETHASONE
     Dates: start: 20221102, end: 20221102
  91. DEXAMETHASONE [Concomitant]
     Active Substance: DEXAMETHASONE
     Dates: start: 20221102, end: 20221102
  92. DEXAMETHASONE [Concomitant]
     Active Substance: DEXAMETHASONE
     Route: 065
     Dates: start: 20221102, end: 20221102
  93. DEXAMETHASONE [Concomitant]
     Active Substance: DEXAMETHASONE
     Route: 065
     Dates: start: 20230118, end: 20230118
  94. DEXAMETHASONE [Concomitant]
     Active Substance: DEXAMETHASONE
     Dates: start: 20230118, end: 20230118
  95. DEXAMETHASONE [Concomitant]
     Active Substance: DEXAMETHASONE
     Dates: start: 20230118, end: 20230118
  96. DEXAMETHASONE [Concomitant]
     Active Substance: DEXAMETHASONE
     Route: 065
     Dates: start: 20230118, end: 20230118
  97. LEUCOVORIN CALCIUM [Concomitant]
     Active Substance: LEUCOVORIN CALCIUM
  98. LEUCOVORIN CALCIUM [Concomitant]
     Active Substance: LEUCOVORIN CALCIUM
     Route: 065
  99. LEUCOVORIN CALCIUM [Concomitant]
     Active Substance: LEUCOVORIN CALCIUM
     Route: 065
  100. LEUCOVORIN CALCIUM [Concomitant]
     Active Substance: LEUCOVORIN CALCIUM
  101. Celecrem [Concomitant]
  102. Celecrem [Concomitant]
     Route: 065
  103. Celecrem [Concomitant]
     Route: 065
  104. Celecrem [Concomitant]
  105. ACETAMINOPHEN [Concomitant]
     Active Substance: ACETAMINOPHEN
     Indication: Premedication
     Route: 065
  106. ACETAMINOPHEN [Concomitant]
     Active Substance: ACETAMINOPHEN
  107. ACETAMINOPHEN [Concomitant]
     Active Substance: ACETAMINOPHEN
  108. ACETAMINOPHEN [Concomitant]
     Active Substance: ACETAMINOPHEN
     Route: 065
  109. ACETAMINOPHEN [Concomitant]
     Active Substance: ACETAMINOPHEN
     Dates: start: 20221102, end: 20221102
  110. ACETAMINOPHEN [Concomitant]
     Active Substance: ACETAMINOPHEN
     Route: 048
     Dates: start: 20221102, end: 20221102
  111. ACETAMINOPHEN [Concomitant]
     Active Substance: ACETAMINOPHEN
     Route: 048
     Dates: start: 20221102, end: 20221102
  112. ACETAMINOPHEN [Concomitant]
     Active Substance: ACETAMINOPHEN
     Dates: start: 20221102, end: 20221102
  113. ACETAMINOPHEN [Concomitant]
     Active Substance: ACETAMINOPHEN
     Dates: start: 20221102, end: 20221102
  114. ACETAMINOPHEN [Concomitant]
     Active Substance: ACETAMINOPHEN
     Route: 065
     Dates: start: 20221102, end: 20221102
  115. ACETAMINOPHEN [Concomitant]
     Active Substance: ACETAMINOPHEN
     Route: 065
     Dates: start: 20221102, end: 20221102
  116. ACETAMINOPHEN [Concomitant]
     Active Substance: ACETAMINOPHEN
     Dates: start: 20221102, end: 20221102
  117. ACETAMINOPHEN [Concomitant]
     Active Substance: ACETAMINOPHEN
     Route: 065
     Dates: start: 20230118, end: 20230118
  118. ACETAMINOPHEN [Concomitant]
     Active Substance: ACETAMINOPHEN
     Dates: start: 20230118, end: 20230118
  119. ACETAMINOPHEN [Concomitant]
     Active Substance: ACETAMINOPHEN
     Route: 065
     Dates: start: 20230118, end: 20230118
  120. ACETAMINOPHEN [Concomitant]
     Active Substance: ACETAMINOPHEN
     Dates: start: 20230118, end: 20230118
  121. ACETAMINOPHEN [Concomitant]
     Active Substance: ACETAMINOPHEN
     Dates: start: 20230118, end: 20230118
  122. ACETAMINOPHEN [Concomitant]
     Active Substance: ACETAMINOPHEN
     Dates: start: 20230118, end: 20230118
  123. ACETAMINOPHEN [Concomitant]
     Active Substance: ACETAMINOPHEN
     Route: 048
     Dates: start: 20230118, end: 20230118
  124. ACETAMINOPHEN [Concomitant]
     Active Substance: ACETAMINOPHEN
     Route: 048
     Dates: start: 20230118, end: 20230118
  125. TINZAPARIN [Concomitant]
     Active Substance: TINZAPARIN
  126. TINZAPARIN [Concomitant]
     Active Substance: TINZAPARIN
     Route: 065
  127. TINZAPARIN [Concomitant]
     Active Substance: TINZAPARIN
     Route: 065
  128. TINZAPARIN [Concomitant]
     Active Substance: TINZAPARIN
  129. ATORVASTATIN [Concomitant]
     Active Substance: ATORVASTATIN
  130. ATORVASTATIN [Concomitant]
     Active Substance: ATORVASTATIN
     Route: 065
  131. ATORVASTATIN [Concomitant]
     Active Substance: ATORVASTATIN
     Route: 065
  132. ATORVASTATIN [Concomitant]
     Active Substance: ATORVASTATIN
  133. ACYCLOVIR [Concomitant]
     Active Substance: ACYCLOVIR
  134. ACYCLOVIR [Concomitant]
     Active Substance: ACYCLOVIR
     Route: 065
  135. ACYCLOVIR [Concomitant]
     Active Substance: ACYCLOVIR
     Route: 065
  136. ACYCLOVIR [Concomitant]
     Active Substance: ACYCLOVIR
  137. FAMOTIDINE [Concomitant]
     Active Substance: FAMOTIDINE
  138. FAMOTIDINE [Concomitant]
     Active Substance: FAMOTIDINE
     Route: 065
  139. FAMOTIDINE [Concomitant]
     Active Substance: FAMOTIDINE
     Route: 065
  140. FAMOTIDINE [Concomitant]
     Active Substance: FAMOTIDINE
  141. PREDNISONE [Concomitant]
     Active Substance: PREDNISONE
     Indication: Prophylaxis
     Route: 065
     Dates: start: 201907, end: 201912
  142. PREDNISONE [Concomitant]
     Active Substance: PREDNISONE
     Dates: start: 201907, end: 201912
  143. PREDNISONE [Concomitant]
     Active Substance: PREDNISONE
     Dates: start: 201907, end: 201912
  144. PREDNISONE [Concomitant]
     Active Substance: PREDNISONE
     Route: 065
     Dates: start: 201907, end: 201912
  145. PREDNISONE [Concomitant]
     Active Substance: PREDNISONE
     Route: 048
     Dates: start: 20221102, end: 20230121
  146. PREDNISONE [Concomitant]
     Active Substance: PREDNISONE
     Dates: start: 20221102, end: 20230121
  147. PREDNISONE [Concomitant]
     Active Substance: PREDNISONE
     Dates: start: 20221102, end: 20230121
  148. PREDNISONE [Concomitant]
     Active Substance: PREDNISONE
     Route: 048
     Dates: start: 20221102, end: 20230121
  149. PREDNISONE [Concomitant]
     Active Substance: PREDNISONE
     Route: 065
  150. PREDNISONE [Concomitant]
     Active Substance: PREDNISONE
  151. PREDNISONE [Concomitant]
     Active Substance: PREDNISONE
  152. PREDNISONE [Concomitant]
     Active Substance: PREDNISONE
     Route: 065
  153. PREDNISONE [Concomitant]
     Active Substance: PREDNISONE
     Route: 048
     Dates: start: 20221102, end: 20221102
  154. PREDNISONE [Concomitant]
     Active Substance: PREDNISONE
     Dates: start: 20221102, end: 20221102
  155. PREDNISONE [Concomitant]
     Active Substance: PREDNISONE
     Dates: start: 20221102, end: 20221102
  156. PREDNISONE [Concomitant]
     Active Substance: PREDNISONE
     Route: 048
     Dates: start: 20221102, end: 20221102
  157. FUROSEMIDE [Concomitant]
     Active Substance: FUROSEMIDE
  158. FUROSEMIDE [Concomitant]
     Active Substance: FUROSEMIDE
     Route: 065
  159. FUROSEMIDE [Concomitant]
     Active Substance: FUROSEMIDE
     Route: 065
  160. FUROSEMIDE [Concomitant]
     Active Substance: FUROSEMIDE
  161. CALCIUM [Concomitant]
     Active Substance: CALCIUM
  162. CALCIUM [Concomitant]
     Active Substance: CALCIUM
     Route: 065
  163. CALCIUM [Concomitant]
     Active Substance: CALCIUM
     Route: 065
  164. CALCIUM [Concomitant]
     Active Substance: CALCIUM
  165. VITAMIN D [Concomitant]
     Active Substance: VITAMIN D NOS
  166. VITAMIN D [Concomitant]
     Active Substance: VITAMIN D NOS
     Route: 065
  167. VITAMIN D [Concomitant]
     Active Substance: VITAMIN D NOS
     Route: 065
  168. VITAMIN D [Concomitant]
     Active Substance: VITAMIN D NOS
  169. COVID-19 CONVALESCENT PLASMA [Concomitant]
     Active Substance: COVID-19 CONVALESCENT PLASMA
     Dates: start: 20230214, end: 20230214
  170. COVID-19 CONVALESCENT PLASMA [Concomitant]
     Active Substance: COVID-19 CONVALESCENT PLASMA
     Route: 065
     Dates: start: 20230214, end: 20230214
  171. COVID-19 CONVALESCENT PLASMA [Concomitant]
     Active Substance: COVID-19 CONVALESCENT PLASMA
     Route: 065
     Dates: start: 20230214, end: 20230214
  172. COVID-19 CONVALESCENT PLASMA [Concomitant]
     Active Substance: COVID-19 CONVALESCENT PLASMA
     Dates: start: 20230214, end: 20230214
  173. REMDESIVIR [Concomitant]
     Active Substance: REMDESIVIR
     Dates: start: 20230125, end: 20230127
  174. REMDESIVIR [Concomitant]
     Active Substance: REMDESIVIR
     Route: 065
     Dates: start: 20230125, end: 20230127
  175. REMDESIVIR [Concomitant]
     Active Substance: REMDESIVIR
     Route: 065
     Dates: start: 20230125, end: 20230127
  176. REMDESIVIR [Concomitant]
     Active Substance: REMDESIVIR
     Dates: start: 20230125, end: 20230127
  177. LEUCOVORIN CALCIUM [Concomitant]
     Active Substance: LEUCOVORIN CALCIUM
  178. LEUCOVORIN CALCIUM [Concomitant]
     Active Substance: LEUCOVORIN CALCIUM
     Route: 065
  179. LEUCOVORIN CALCIUM [Concomitant]
     Active Substance: LEUCOVORIN CALCIUM
     Route: 065
  180. LEUCOVORIN CALCIUM [Concomitant]
     Active Substance: LEUCOVORIN CALCIUM
  181. COVID-19 vaccine [Concomitant]
  182. COVID-19 vaccine [Concomitant]
     Route: 065
  183. COVID-19 vaccine [Concomitant]
     Route: 065
  184. COVID-19 vaccine [Concomitant]
  185. POTASSIUM PHOSPHATE, MONOBASIC [Concomitant]
     Active Substance: POTASSIUM PHOSPHATE, MONOBASIC
  186. POTASSIUM PHOSPHATE, MONOBASIC [Concomitant]
     Active Substance: POTASSIUM PHOSPHATE, MONOBASIC
     Route: 065
  187. POTASSIUM PHOSPHATE, MONOBASIC [Concomitant]
     Active Substance: POTASSIUM PHOSPHATE, MONOBASIC
     Route: 065
  188. POTASSIUM PHOSPHATE, MONOBASIC [Concomitant]
     Active Substance: POTASSIUM PHOSPHATE, MONOBASIC
  189. AMIKACIN [Concomitant]
     Active Substance: AMIKACIN
  190. AMIKACIN [Concomitant]
     Active Substance: AMIKACIN
     Route: 065
  191. AMIKACIN [Concomitant]
     Active Substance: AMIKACIN
     Route: 065
  192. AMIKACIN [Concomitant]
     Active Substance: AMIKACIN
  193. METHYLPREDNISOLONE [Concomitant]
     Active Substance: METHYLPREDNISOLONE
  194. METHYLPREDNISOLONE [Concomitant]
     Active Substance: METHYLPREDNISOLONE
     Route: 065
  195. METHYLPREDNISOLONE [Concomitant]
     Active Substance: METHYLPREDNISOLONE
     Route: 065
  196. METHYLPREDNISOLONE [Concomitant]
     Active Substance: METHYLPREDNISOLONE
  197. ALBUTEROL [Concomitant]
     Active Substance: ALBUTEROL
  198. ALBUTEROL [Concomitant]
     Active Substance: ALBUTEROL
     Route: 065
  199. ALBUTEROL [Concomitant]
     Active Substance: ALBUTEROL
     Route: 065
  200. ALBUTEROL [Concomitant]
     Active Substance: ALBUTEROL
  201. SODIUM CHLORIDE [Concomitant]
     Active Substance: SODIUM CHLORIDE
     Dates: start: 20230124, end: 20230215
  202. SODIUM CHLORIDE [Concomitant]
     Active Substance: SODIUM CHLORIDE
     Route: 065
     Dates: start: 20230124, end: 20230215
  203. SODIUM CHLORIDE [Concomitant]
     Active Substance: SODIUM CHLORIDE
     Route: 065
     Dates: start: 20230124, end: 20230215
  204. SODIUM CHLORIDE [Concomitant]
     Active Substance: SODIUM CHLORIDE
     Dates: start: 20230124, end: 20230215
  205. IPRATROPIUM BROMIDE [Concomitant]
     Active Substance: IPRATROPIUM BROMIDE
  206. IPRATROPIUM BROMIDE [Concomitant]
     Active Substance: IPRATROPIUM BROMIDE
     Route: 065
  207. IPRATROPIUM BROMIDE [Concomitant]
     Active Substance: IPRATROPIUM BROMIDE
     Route: 065
  208. IPRATROPIUM BROMIDE [Concomitant]
     Active Substance: IPRATROPIUM BROMIDE
  209. MEPERIDINE [Concomitant]
     Active Substance: MEPERIDINE
  210. MEPERIDINE [Concomitant]
     Active Substance: MEPERIDINE
     Route: 065
  211. MEPERIDINE [Concomitant]
     Active Substance: MEPERIDINE
     Route: 065
  212. MEPERIDINE [Concomitant]
     Active Substance: MEPERIDINE
  213. VANCOMYCIN [Concomitant]
     Active Substance: VANCOMYCIN
     Dates: start: 20230124, end: 20230124
  214. VANCOMYCIN [Concomitant]
     Active Substance: VANCOMYCIN
     Route: 065
     Dates: start: 20230124, end: 20230124
  215. VANCOMYCIN [Concomitant]
     Active Substance: VANCOMYCIN
     Route: 065
     Dates: start: 20230124, end: 20230124
  216. VANCOMYCIN [Concomitant]
     Active Substance: VANCOMYCIN
     Dates: start: 20230124, end: 20230124

REACTIONS (4)
  - Pneumonia [Recovered/Resolved]
  - Organising pneumonia [Not Recovered/Not Resolved]
  - COVID-19 [Not Recovered/Not Resolved]
  - Herpes simplex [Unknown]

NARRATIVE: CASE EVENT DATE: 20230123
